FAERS Safety Report 14627920 (Version 2)
Quarter: 2018Q2

REPORT INFORMATION
  Report Type: Spontaneous
  Country: JP (occurrence: JP)
  Receive Date: 20180312
  Receipt Date: 20180402
  Transmission Date: 20180711
  Serious: Yes (Other)
  Sender: FDA-Public Use
  Company Number: JP-BAUSCH-BL-2018-006445

PATIENT
  Age: 63 Year
  Sex: Female

DRUGS (6)
  1. LUMICEF [Suspect]
     Active Substance: BRODALUMAB
     Indication: PSORIASIS
     Route: 058
     Dates: start: 20170908
  2. LUMICEF [Suspect]
     Active Substance: BRODALUMAB
     Route: 058
     Dates: start: 20180314
  3. MARDUOX [Concomitant]
     Indication: PSORIASIS
     Route: 061
     Dates: start: 20170830
  4. COSENTYX [Concomitant]
     Active Substance: SECUKINUMAB
     Indication: PSORIASIS
     Dosage: GENETICAL RECOMBINATION
     Route: 058
     Dates: start: 20170508, end: 20170830
  5. ANTEBATE [Concomitant]
     Active Substance: BETAMETHASONE DIPROPIONATE
     Indication: PSORIASIS
     Dosage: EXCEPT LOTION FOR EYE
     Route: 061
     Dates: start: 20151125
  6. HUMIRA [Concomitant]
     Active Substance: ADALIMUMAB
     Indication: PSORIASIS
     Dosage: GENETICAL RECOMBINATION
     Route: 058
     Dates: start: 20150610, end: 20170426

REACTIONS (2)
  - Subcutaneous abscess [Recovered/Resolved]
  - Cellulitis [Recovered/Resolved]

NARRATIVE: CASE EVENT DATE: 20180219
